FAERS Safety Report 7985583-7 (Version None)
Quarter: 2011Q4

REPORT INFORMATION
  Report Type: 
  Country: None (occurrence: None)
  Receive Date: 20111216
  Receipt Date: 20111212
  Transmission Date: 20120403
  Serious: Yes (Hospitalization)
  Sender: FDA-Public Use
  Company Number: US-BRISTOL-MYERS SQUIBB COMPANY-16211096

PATIENT
  Age: 48 Year
  Sex: Female
  Weight: 77 kg

DRUGS (3)
  1. CETUXIMAB [Suspect]
     Indication: COLORECTAL CANCER
     Dosage: LAST DOSE: DAY 29,18OCT11,LAST INF;8NOV11 NO.DOSE:11.INTR:1NOV11. RESD:08NOV11,CYC3 D43,800MG/M2
     Dates: start: 20110419
  2. OXALIPLATIN [Suspect]
     Indication: COLORECTAL CANCER
     Dosage: LAST DOSE: DAY 29 ON 18OCT11 NO OF DOSE:12.INTR ON 01NOV11. RESD ON 08NOV11,CYC3 D43 (120 MG)
     Dates: start: 20110419
  3. FLUOROURACIL [Suspect]
     Indication: COLORECTAL CANCER
     Dosage: LAST DOSE: DAY 29 ON 18OCT11 NO OF DOSE:12.INTR ON 01NOV11. RESD ON 08NOV11,CYC3 D43 (4600 MG)
     Dates: start: 20110419

REACTIONS (6)
  - PANCYTOPENIA [None]
  - UPPER GASTROINTESTINAL HAEMORRHAGE [None]
  - HAEMORRHAGE [None]
  - PYREXIA [None]
  - EPISTAXIS [None]
  - PLATELET COUNT DECREASED [None]
